FAERS Safety Report 17723249 (Version 1)
Quarter: 2020Q2

REPORT INFORMATION
  Report Type: Spontaneous
  Country: CN (occurrence: CN)
  Receive Date: 20200429
  Receipt Date: 20200429
  Transmission Date: 20200714
  Serious: Yes (Other)
  Sender: FDA-Public Use
  Company Number: CN-BAXTER-2020BAX008924

PATIENT
  Age: 49 Year
  Sex: Female
  Weight: 43 kg

DRUGS (6)
  1. DEXAMETHASONE SODIUM PHOSPHATE. [Suspect]
     Active Substance: DEXAMETHASONE SODIUM PHOSPHATE
     Indication: PLASMA CELL LEUKAEMIA
     Dosage: ON DAY 1, 2, 4, 5, 8, 9, 11, 12
     Route: 041
     Dates: start: 20200205, end: 20200216
  2. BORTEZOMIB. [Suspect]
     Active Substance: BORTEZOMIB
     Indication: PLASMA CELL LEUKAEMIA
     Dosage: ON DAY 1, 4, 8, 11
     Route: 041
     Dates: start: 20200205, end: 20200215
  3. ENDOXAN [Suspect]
     Active Substance: CYCLOPHOSPHAMIDE
     Indication: PLASMA CELL LEUKAEMIA
     Dosage: ON DAY 1, 8, 15
     Route: 041
     Dates: start: 20200205, end: 20200219
  4. BORTEZOMIB. [Suspect]
     Active Substance: BORTEZOMIB
     Dosage: DOSE RE-INTRODUCED
     Route: 041
  5. DEXAMETHASONE SODIUM PHOSPHATE. [Suspect]
     Active Substance: DEXAMETHASONE SODIUM PHOSPHATE
     Dosage: DOSE RE-INTRODUCED
     Route: 041
  6. ENDOXAN [Suspect]
     Active Substance: CYCLOPHOSPHAMIDE
     Dosage: DOSE RE-INTRODUCED
     Route: 041

REACTIONS (1)
  - Hypokalaemia [Recovering/Resolving]

NARRATIVE: CASE EVENT DATE: 20200215
